FAERS Safety Report 10052748 (Version 2)
Quarter: 2014Q2

REPORT INFORMATION
  Report Type: Spontaneous
  Country: US (occurrence: US)
  Receive Date: 20140402
  Receipt Date: 20140515
  Transmission Date: 20141212
  Serious: No
  Sender: FDA-Public Use
  Company Number: US-009507513-1403USA009999

PATIENT
  Age: 24 Year
  Sex: Female
  Weight: 111.11 kg

DRUGS (2)
  1. IMPLANON [Suspect]
     Indication: CONTRACEPTION
     Dosage: 68 MG, ONE ROD
     Route: 059
     Dates: start: 20110330, end: 20140319
  2. NEXPLANON [Suspect]
     Dosage: UNK

REACTIONS (3)
  - Device dislocation [Recovered/Resolved]
  - Overdose [Unknown]
  - No adverse event [Unknown]
